FAERS Safety Report 17282629 (Version 1)
Quarter: 2020Q1

REPORT INFORMATION
  Report Type: Spontaneous
  Country: US (occurrence: US)
  Receive Date: 20200117
  Receipt Date: 20200117
  Transmission Date: 20200409
  Serious: Yes (Other)
  Sender: FDA-Public Use
  Company Number: US-GLAXOSMITHKLINE-US2020004430

PATIENT
  Age: 27 Year
  Sex: Female

DRUGS (1)
  1. SENSODYNE COMPLETE PROTECTION EXTRA FRESH [Suspect]
     Active Substance: STANNOUS FLUORIDE
     Indication: HYPERAESTHESIA TEETH
     Dosage: UNK
     Route: 065
     Dates: start: 20191208, end: 20200104

REACTIONS (9)
  - Gingival injury [Unknown]
  - Gingival discomfort [Unknown]
  - Burn oral cavity [Not Recovered/Not Resolved]
  - Adverse drug reaction [Unknown]
  - Lip swelling [Unknown]
  - Gingival erythema [Unknown]
  - Mouth injury [Unknown]
  - Lip injury [Unknown]
  - Stomatitis [Unknown]

NARRATIVE: CASE EVENT DATE: 20191208
